FAERS Safety Report 12310920 (Version 1)
Quarter: 2016Q2

REPORT INFORMATION
  Report Type: Spontaneous
  Country: US (occurrence: US)
  Receive Date: 20160427
  Receipt Date: 20160427
  Transmission Date: 20160815
  Serious: No
  Sender: FDA-Public Use
  Company Number: US-B.I. PHARMACEUTICALS,INC./RIDGEFIELD-2016-BI-25779YA

PATIENT
  Age: 62 Year
  Sex: Male

DRUGS (1)
  1. TAMSULOSINA [Suspect]
     Active Substance: TAMSULOSIN HYDROCHLORIDE
     Indication: DYSURIA
     Route: 048

REACTIONS (1)
  - Sexual dysfunction [Recovered/Resolved]

NARRATIVE: CASE EVENT DATE: 200802
